FAERS Safety Report 13407302 (Version 1)
Quarter: 2017Q2

REPORT INFORMATION
  Report Type: Spontaneous
  Country: CA (occurrence: CA)
  Receive Date: 20170405
  Receipt Date: 20170405
  Transmission Date: 20170830
  Serious: Yes (Death)
  Sender: FDA-Public Use
  Company Number: CA-HLSUS-2017-CA-000278

PATIENT
  Age: 61 Year
  Sex: Male

DRUGS (8)
  1. CLOZARIL [Suspect]
     Active Substance: CLOZAPINE
     Dosage: 100 MG 1 EVERY DAY (S)
     Route: 048
  2. OLANZAPINE. [Concomitant]
     Active Substance: OLANZAPINE
  3. LITHIUM. [Concomitant]
     Active Substance: LITHIUM
  4. LORAZEPAM. [Concomitant]
     Active Substance: LORAZEPAM
  5. RISPERIDONE. [Concomitant]
     Active Substance: RISPERIDONE
  6. ATORVASTATIN CALCIUM. [Concomitant]
     Active Substance: ATORVASTATIN CALCIUM
  7. BENZTROPINE [Concomitant]
     Active Substance: BENZTROPINE
  8. LEVOTHYROXINE. [Concomitant]
     Active Substance: LEVOTHYROXINE

REACTIONS (4)
  - Confusional state [Unknown]
  - Death [Fatal]
  - Myocarditis [Unknown]
  - Delirium [Unknown]
